FAERS Safety Report 14678101 (Version 1)
Quarter: 2018Q1

REPORT INFORMATION
  Report Type: Spontaneous
  Country: US (occurrence: US)
  Receive Date: 20180326
  Receipt Date: 20180326
  Transmission Date: 20180509
  Serious: No
  Sender: FDA-Public Use
  Company Number: US-ASTRAZENECA-2018SE33975

PATIENT
  Age: 1038 Month
  Sex: Female
  Weight: 39.9 kg

DRUGS (2)
  1. PROAIR HFA [Concomitant]
     Active Substance: ALBUTEROL SULFATE
     Indication: PROPHYLAXIS
     Dosage: EVERY 4 - 6 HOURS
     Route: 055
     Dates: start: 2013
  2. SYMBICORT [Suspect]
     Active Substance: BUDESONIDE\FORMOTEROL FUMARATE DIHYDRATE
     Indication: CHRONIC OBSTRUCTIVE PULMONARY DISEASE
     Dosage: 160/4.5 MCG TWO PUFFS TWICE DAILY
     Route: 055
     Dates: start: 2013

REACTIONS (7)
  - Off label use [Unknown]
  - Drug ineffective [Unknown]
  - Atrial fibrillation [Unknown]
  - Circumstance or information capable of leading to device use error [Unknown]
  - Cardiac failure congestive [Unknown]
  - Wrong technique in device usage process [Unknown]
  - Intentional product misuse [Unknown]

NARRATIVE: CASE EVENT DATE: 201801
